FAERS Safety Report 4690593-1 (Version None)
Quarter: 2005Q2

REPORT INFORMATION
  Report Type: 
  Country: None (occurrence: None)
  Receive Date: 20050615
  Receipt Date: 20050225
  Transmission Date: 20051028
  Serious: Yes (Hospitalization)
  Sender: FDA-Public Use
  Company Number: US-BOEHRINGER INGELHEIM PHARMMACEUTICALS, INC.-2005-BP-03081BP

PATIENT
  Sex: Male

DRUGS (6)
  1. COMBIVENT [Suspect]
     Indication: CHRONIC OBSTRUCTIVE PULMONARY DISEASE
     Route: 055
     Dates: start: 20041201
  2. COMBIVENT [Suspect]
     Indication: ASTHMA
  3. SPIRIVA [Concomitant]
  4. ADVAIR [Concomitant]
  5. NEBULIZED ALBERTEROL SOLUTION [Concomitant]
  6. NEBULIZED IPRATROPIUM SOLUTION [Concomitant]

REACTIONS (5)
  - ASTHMA [None]
  - CONDITION AGGRAVATED [None]
  - DYSGEUSIA [None]
  - LUNG INFECTION [None]
  - PHARMACEUTICAL PRODUCT COMPLAINT [None]
